FAERS Safety Report 6588350-4 (Version None)
Quarter: 2010Q1

REPORT INFORMATION
  Report Type: 
  Country: None (occurrence: None)
  Receive Date: 20100218
  Receipt Date: 20100215
  Transmission Date: 20100710
  Serious: Yes (Other)
  Sender: FDA-Public Use
  Company Number: TR-ROXANE LABORATORIES, INC.-2010-RO-00159RO

PATIENT
  Age: 46 Year
  Sex: Male

DRUGS (7)
  1. CYCLOPHOSPHAMIDE [Suspect]
     Indication: WEGENER'S GRANULOMATOSIS
  2. CYCLOPHOSPHAMIDE [Suspect]
     Dosage: 150 MG
  3. PREDNISONE [Suspect]
  4. AZATHIOPRINE [Suspect]
     Indication: WEGENER'S GRANULOMATOSIS
     Dosage: 50 MG
  5. AZATHIOPRINE [Suspect]
     Indication: PROTEINURIA
  6. METHYLPREDNISOLONE [Suspect]
     Indication: WEGENER'S GRANULOMATOSIS
     Dosage: 1 G
     Route: 042
  7. METHYLPREDNISOLONE [Suspect]

REACTIONS (3)
  - DISEASE RECURRENCE [None]
  - OSTEONECROSIS [None]
  - RENAL CELL CARCINOMA [None]
